FAERS Safety Report 4729348-8 (Version None)
Quarter: 2005Q3

REPORT INFORMATION
  Report Type: 
  Country: None (occurrence: None)
  Receive Date: 20050729
  Receipt Date: 20050705
  Transmission Date: 20060218
  Serious: Yes (Hospitalization)
  Sender: FDA-Public Use
  Company Number: FR-ABBOTT-05P-056-0305108-00

PATIENT
  Age: 58 Year
  Sex: Male

DRUGS (4)
  1. ZECLAR TABLETS [Suspect]
     Indication: PULMONARY TUBERCULOSIS
     Route: 048
     Dates: start: 20041221, end: 20050117
  2. ETHAMBUTOL + ISONIAZIDE [Suspect]
     Indication: PULMONARY TUBERCULOSIS
     Route: 048
     Dates: start: 20041221, end: 20050117
  3. RIFABUTIN [Suspect]
     Indication: PULMONARY TUBERCULOSIS
     Route: 048
     Dates: start: 20041221, end: 20050117
  4. MOXIFLOXACIN ANHYDRE [Suspect]
     Indication: PULMONARY TUBERCULOSIS
     Route: 048
     Dates: start: 20041221, end: 20050117

REACTIONS (4)
  - MYOCARDIAL INFARCTION [None]
  - NEUTROPENIA [None]
  - RECTAL HAEMORRHAGE [None]
  - THROMBOCYTOPENIA [None]
